FAERS Safety Report 11532361 (Version 1)
Quarter: 2015Q3

REPORT INFORMATION
  Report Type: Spontaneous
  Country: JP (occurrence: JP)
  Receive Date: 20150921
  Receipt Date: 20150921
  Transmission Date: 20151125
  Serious: Yes (Hospitalization)
  Sender: FDA-Public Use
  Company Number: JP-TAKEDA-2014TJP015934

PATIENT
  Age: 69 Year
  Sex: Female
  Weight: 64 kg

DRUGS (15)
  1. DAMSEL                             /00145301/ [Concomitant]
     Dosage: 2.5 MG, BID
     Route: 048
     Dates: start: 20060606, end: 20060626
  2. LIOVEL COMBINATION TABLETS LD [Suspect]
     Active Substance: ALOGLIPTIN BENZOATE\PIOGLITAZONE HYDROCHLORIDE
     Indication: DIABETES MELLITUS
     Dosage: 1 DF, QD
     Route: 048
     Dates: start: 20120728, end: 20140520
  3. NITRENAL [Concomitant]
     Indication: HYPERTENSION
     Dosage: 5 MG, BID
     Route: 048
     Dates: start: 19990426, end: 20101223
  4. VOGLIBOSE [Concomitant]
     Active Substance: VOGLIBOSE
     Indication: DIABETES MELLITUS
     Dosage: 0.3 MG, TID
     Route: 048
     Dates: start: 20060201, end: 20110121
  5. DAMSEL                             /00145301/ [Concomitant]
     Dosage: 5 MG, BID
     Route: 048
     Dates: start: 20060627, end: 20110221
  6. PAMILCON [Concomitant]
     Active Substance: GLYBURIDE
     Dosage: 2.5 MG, QD
     Route: 048
     Dates: start: 20110627, end: 20141031
  7. LIPITOR [Concomitant]
     Active Substance: ATORVASTATIN CALCIUM
     Indication: HYPERLIPIDAEMIA
     Dosage: 10 MG, QD
     Route: 048
     Dates: start: 20000712, end: 20140616
  8. PAMILCON [Concomitant]
     Active Substance: GLYBURIDE
     Indication: DIABETES MELLITUS
     Dosage: 0.625 MG, QD
     Route: 048
     Dates: start: 19990501, end: 20040608
  9. MICAMLO [Concomitant]
     Active Substance: AMLODIPINE BESYLATE\TELMISARTAN
     Indication: HYPERTENSION
     Dosage: 1 DF, QD
     Route: 048
     Dates: start: 20101224
  10. DAMSEL                             /00145301/ [Concomitant]
     Indication: DIABETES MELLITUS
     Dosage: 1.25 MG, BID
     Route: 048
     Dates: start: 20050628, end: 20060605
  11. NELBIS [Concomitant]
     Active Substance: METFORMIN HYDROCHLORIDE
     Indication: DIABETES MELLITUS
     Dosage: 250 MG, QD
     Route: 048
     Dates: start: 20110222, end: 20131114
  12. ACTOS [Suspect]
     Active Substance: PIOGLITAZONE HYDROCHLORIDE
     Indication: DIABETES MELLITUS
     Dosage: 15 MG, QD
     Route: 048
     Dates: start: 20060901, end: 20110122
  13. MIROBECT [Concomitant]
     Indication: HYPERTENSION
     Dosage: 25 MG, BID
     Route: 048
     Dates: start: 19990426, end: 20101223
  14. MICARDIS [Concomitant]
     Active Substance: TELMISARTAN
     Indication: HYPERTENSION
     Dosage: 40 MG, QD
     Route: 048
     Dates: start: 20050128, end: 20100123
  15. PAMILCON [Concomitant]
     Active Substance: GLYBURIDE
     Dosage: 0.625 MG, BID
     Route: 048
     Dates: start: 20040609, end: 20050627

REACTIONS (1)
  - Bladder neoplasm [Unknown]

NARRATIVE: CASE EVENT DATE: 20140920
